FAERS Safety Report 7465013-4 (Version None)
Quarter: 2011Q2

REPORT INFORMATION
  Report Type: 
  Country: None (occurrence: None)
  Receive Date: 20110509
  Receipt Date: 20110324
  Transmission Date: 20111010
  Serious: Yes (Hospitalization, Other)
  Sender: FDA-Public Use
  Company Number: US-BAYER-201038322NA

PATIENT
  Age: 30 Year
  Sex: Female
  Weight: 60.771 kg

DRUGS (11)
  1. CHOLESTYRAMINE [Concomitant]
     Dosage: UNK
     Dates: start: 20060928
  2. YAZ [Suspect]
     Dosage: UNK UNK, QD
     Route: 048
     Dates: start: 20050101, end: 20060101
  3. YASMIN [Suspect]
     Indication: PRODUCT USED FOR UNKNOWN INDICATION
  4. PROTONIX [Concomitant]
     Dosage: UNK
     Dates: start: 20060208
  5. PHENERGAN HCL [Concomitant]
     Dosage: 25 MG, UNK
     Route: 042
     Dates: start: 20060305
  6. NEXIUM [Concomitant]
     Dosage: UNK
     Dates: start: 20060928
  7. DROSPIRENONE AND ETHINYL ESTRADIOL [Suspect]
     Indication: PRODUCT USED FOR UNKNOWN INDICATION
  8. PREVACID [Concomitant]
  9. PROTONIX [Concomitant]
     Dosage: 40 MG, UNK
     Route: 042
     Dates: start: 20060305
  10. DILAUDID [Concomitant]
     Dosage: 1 MG, UNK
     Route: 042
     Dates: start: 20060305
  11. IMODIUM MULTI-SYMPTOM RELIEF [Concomitant]
     Dosage: UNK
     Dates: start: 20060928

REACTIONS (4)
  - GASTROINTESTINAL DISORDER [None]
  - BILIARY DYSKINESIA [None]
  - GALLBLADDER NON-FUNCTIONING [None]
  - INJURY [None]
